FAERS Safety Report 5321237-3 (Version None)
Quarter: 2007Q1

REPORT INFORMATION
  Report Type: 
  Country: None (occurrence: None)
  Receive Date: 20070215
  Receipt Date: 20061024
  Transmission Date: 20070707
  Serious: No
  Sender: FDA-Public Use
  Company Number: 200614527BWH

PATIENT
  Sex: Male
  Weight: 79.3795 kg

DRUGS (1)
  1. NEXAVAR [Suspect]
     Indication: ILL-DEFINED DISORDER
     Dosage: 200 MG, QD, ORAL
     Route: 048

REACTIONS (9)
  - ANOREXIA [None]
  - ARTHRALGIA [None]
  - BALANCE DISORDER [None]
  - DEPRESSION [None]
  - FEELING ABNORMAL [None]
  - GAIT DISTURBANCE [None]
  - MENTAL STATUS CHANGES [None]
  - NAUSEA [None]
  - VISION BLURRED [None]
